FAERS Safety Report 14806510 (Version 1)
Quarter: 2018Q2

REPORT INFORMATION
  Report Type: Spontaneous
  Country: DE (occurrence: DE)
  Receive Date: 20180425
  Receipt Date: 20180425
  Transmission Date: 20180711
  Serious: Yes (Life-Threatening, Hospitalization)
  Sender: FDA-Public Use
  Company Number: DE-TEVA-2018-DE-885060

PATIENT
  Age: 31 Year
  Sex: Female

DRUGS (3)
  1. RISPERIDAL [Suspect]
     Active Substance: RISPERIDONE
     Indication: BRIEF PSYCHOTIC DISORDER, WITH POSTPARTUM ONSET
     Dosage: 3 MILLIGRAM DAILY;
     Route: 048
     Dates: start: 2017
  2. ABILIFY [Concomitant]
     Active Substance: ARIPIPRAZOLE
     Dosage: 20 MILLIGRAM DAILY; DOSAGE FORM: UNSPECIFIED
     Route: 065
  3. GASTROZEPIN [Concomitant]
     Active Substance: PIRENZEPINE HYDROCHLORIDE
     Dosage: 75 MILLIGRAM DAILY;
     Route: 065

REACTIONS (3)
  - Pulmonary embolism [Recovered/Resolved with Sequelae]
  - Product use in unapproved indication [Unknown]
  - Off label use [Unknown]

NARRATIVE: CASE EVENT DATE: 2017
